FAERS Safety Report 6737758-2 (Version None)
Quarter: 2010Q2

REPORT INFORMATION
  Report Type: 
  Country: None (occurrence: None)
  Receive Date: 20100520
  Receipt Date: 20100507
  Transmission Date: 20101027
  Serious: Yes (Other)
  Sender: FDA-Public Use
  Company Number: 7004349

PATIENT
  Age: 54 Year
  Sex: Female

DRUGS (4)
  1. REBIF [Suspect]
     Indication: MULTIPLE SCLEROSIS
     Dosage: SUBCUTANEOUS
     Route: 058
     Dates: start: 20090311, end: 20100407
  2. UNSPECIFIED MEDICATIONS FOR HELICOBACTER PYLORI(ALL OTHER THERAPEUTIC [Suspect]
     Indication: HELICOBACTER INFECTION
     Dates: start: 20100407, end: 20100409
  3. FLONASE [Concomitant]
  4. ADVAIR DISKUS 100/50 [Concomitant]

REACTIONS (4)
  - DRUG HYPERSENSITIVITY [None]
  - INJECTION SITE ERYTHEMA [None]
  - INJECTION SITE RASH [None]
  - INJECTION SITE VESICLES [None]
